FAERS Safety Report 12238103 (Version 1)
Quarter: 2016Q2

REPORT INFORMATION
  Report Type: Spontaneous
  Country: US (occurrence: None)
  Receive Date: 20160404
  Receipt Date: 20160404
  Transmission Date: 20160815
  Serious: Yes (Other)
  Sender: FDA-Public Use
  Company Number: None

PATIENT
  Age: 52 Year
  Sex: Female
  Weight: 50.35 kg

DRUGS (10)
  1. PHENERGAN [Concomitant]
     Active Substance: PROMETHAZINE HYDROCHLORIDE
  2. ESTROVERA [Concomitant]
  3. ZYRTEC [Concomitant]
     Active Substance: CETIRIZINE HYDROCHLORIDE
  4. METFORMIN [Concomitant]
     Active Substance: METFORMIN HYDROCHLORIDE
  5. INDERAL LA [Suspect]
     Active Substance: PROPRANOLOL HYDROCHLORIDE
     Indication: MIGRAINE PROPHYLAXIS
     Route: 048
     Dates: start: 20160315, end: 20160328
  6. VALIUM [Concomitant]
     Active Substance: DIAZEPAM
  7. MAGNESIUM [Concomitant]
     Active Substance: MAGNESIUM
  8. COQ10 [Concomitant]
     Active Substance: UBIDECARENONE
  9. ZOFRAN [Concomitant]
     Active Substance: ONDANSETRON HYDROCHLORIDE
  10. PROBIOTIC [Concomitant]
     Active Substance: PROBIOTICS NOS

REACTIONS (24)
  - Influenza like illness [None]
  - Oropharyngeal pain [None]
  - Activities of daily living impaired [None]
  - Diarrhoea [None]
  - Hypoaesthesia [None]
  - Dizziness [None]
  - Paraesthesia [None]
  - Muscle spasms [None]
  - Mobility decreased [None]
  - Myalgia [None]
  - Arthralgia [None]
  - Fatigue [None]
  - Skin exfoliation [None]
  - Joint swelling [None]
  - Pain in extremity [None]
  - Sleep disorder due to general medical condition, insomnia type [None]
  - Vision blurred [None]
  - Peripheral swelling [None]
  - Palpitations [None]
  - Muscular weakness [None]
  - Insomnia [None]
  - Dry skin [None]
  - Joint range of motion decreased [None]
  - Weight increased [None]

NARRATIVE: CASE EVENT DATE: 20160321
